FAERS Safety Report 6216806-2 (Version None)
Quarter: 2009Q2

REPORT INFORMATION
  Report Type: 
  Country: None (occurrence: None)
  Receive Date: 20090603
  Receipt Date: 20090603
  Transmission Date: 20091009
  Serious: Yes (Other)
  Sender: FDA-Public Use
  Company Number: None

PATIENT
  Sex: Male
  Weight: 56.6996 kg

DRUGS (3)
  1. AMITRIPTYLINE HCL [Suspect]
     Indication: EAR DISORDER
     Dates: start: 20090504
  2. AMITRIPTYLINE HCL [Suspect]
     Indication: NERVE INJURY
     Dates: start: 20090504
  3. SYNTHROID [Concomitant]

REACTIONS (1)
  - EPISTAXIS [None]
